FAERS Safety Report 10508120 (Version 1)
Quarter: 2014Q4

REPORT INFORMATION
  Report Type: Not Available
  Country: CA (occurrence: CA)
  Receive Date: 20141009
  Receipt Date: 20141009
  Transmission Date: 20150528
  Serious: Yes (Hospitalization)
  Sender: FDA-Public Use
  Company Number: CA-MUNDIPHARMA DS AND PHARMACOVIGILANCE-CAN-2014-0005248

PATIENT
  Age: 77 Year
  Sex: Male

DRUGS (2)
  1. MORPHINE SULFATE. [Suspect]
     Active Substance: MORPHINE SULFATE
     Indication: PRODUCT USED FOR UNKNOWN INDICATION
     Dosage: UNK
     Route: 065
  2. ORENCIA [Suspect]
     Active Substance: ABATACEPT
     Indication: PRODUCT USED FOR UNKNOWN INDICATION
     Dosage: 750 MG, 1 EVERY 4 WEEKS
     Route: 042

REACTIONS (5)
  - Asthenia [Unknown]
  - Fall [Unknown]
  - Pneumonia [Unknown]
  - Hallucination [Unknown]
  - Confusional state [Unknown]
